FAERS Safety Report 7636515-2 (Version None)
Quarter: 2011Q3

REPORT INFORMATION
  Report Type: 
  Country: None (occurrence: None)
  Receive Date: 20110726
  Receipt Date: 20110715
  Transmission Date: 20111222
  Serious: Yes (Hospitalization, Disabling)
  Sender: FDA-Public Use
  Company Number: US-MERCK-1008USA00828

PATIENT
  Age: 61 Year
  Sex: Male

DRUGS (3)
  1. ISENTRESS [Suspect]
     Route: 048
     Dates: end: 20100805
  2. TRUVADA [Concomitant]
     Route: 065
  3. ISENTRESS [Suspect]
     Indication: HIV TEST POSITIVE
     Route: 048
     Dates: start: 20100617

REACTIONS (5)
  - VASCULITIS [None]
  - RENAL FAILURE ACUTE [None]
  - DRUG RASH WITH EOSINOPHILIA AND SYSTEMIC SYMPTOMS [None]
  - PANCREATIC ENZYMES INCREASED [None]
  - DIARRHOEA [None]
